FAERS Safety Report 9842837 (Version 3)
Quarter: 2021Q3

REPORT INFORMATION
  Report Type: Spontaneous
  Country: DE (occurrence: DE)
  Receive Date: 20140124
  Receipt Date: 20210806
  Transmission Date: 20211014
  Serious: Yes (Death, Life-Threatening, Hospitalization, Other)
  Sender: FDA-Public Use
  Company Number: GXKR2014DE000646

PATIENT
  Age: 61 Year
  Sex: Male
  Weight: 61 kg

DRUGS (1)
  1. RAMIPRIL HEXAL [Suspect]
     Active Substance: RAMIPRIL
     Indication: PRODUCT USED FOR UNKNOWN INDICATION
     Dosage: 7.5 MG, QD
     Route: 048
     Dates: start: 2004, end: 20130901

REACTIONS (7)
  - Gallbladder injury [Fatal]
  - Cough [Recovered/Resolved]
  - Plasmacytoma [Fatal]
  - Multi-organ disorder [Fatal]
  - Flatulence [Recovered/Resolved]
  - Bone cancer [Fatal]
  - Eructation [Recovered/Resolved]

NARRATIVE: CASE EVENT DATE: 20130909
